FAERS Safety Report 11045757 (Version 1)
Quarter: 2015Q2

REPORT INFORMATION
  Report Type: Spontaneous
  Country: NZ (occurrence: NZ)
  Receive Date: 20150417
  Receipt Date: 20150417
  Transmission Date: 20150821
  Serious: Yes (Other)
  Sender: FDA-Public Use
  Company Number: NZ-ASTRAZENECA-2015SE34954

PATIENT
  Age: 59 Year
  Sex: Female

DRUGS (13)
  1. ARIMIDEX [Suspect]
     Active Substance: ANASTROZOLE
     Indication: BREAST CANCER
     Route: 048
     Dates: start: 20111005
  2. OMEPRAZOLE. [Concomitant]
     Active Substance: OMEPRAZOLE
  3. PARACETAMOL [Concomitant]
     Active Substance: ACETAMINOPHEN
  4. ZOLEDRONIC ACID [Concomitant]
     Active Substance: ZOLEDRONIC ACID
     Dosage: EVERY 4 WEEKLY
     Dates: start: 20150224
  5. ARIMIDEX [Suspect]
     Active Substance: ANASTROZOLE
     Indication: METASTASES TO LIVER
     Route: 048
     Dates: start: 20111005
  6. TAMOXIFEN [Concomitant]
     Active Substance: TAMOXIFEN
     Dates: start: 200507
  7. FORTISIP [Concomitant]
     Active Substance: CARBOHYDRATES\FATTY ACIDS\MINERALS\PROTEIN\VITAMINS
  8. TAMOXIFEN [Concomitant]
     Active Substance: TAMOXIFEN
     Dates: end: 200411
  9. ZOLADEX [Concomitant]
     Active Substance: GOSERELIN ACETATE
     Route: 058
     Dates: start: 200411, end: 200507
  10. ARIMIDEX [Suspect]
     Active Substance: ANASTROZOLE
     Indication: METASTASES TO BONE
     Route: 048
     Dates: start: 20111005
  11. ZOPICLONE [Concomitant]
     Active Substance: ZOPICLONE
     Route: 048
  12. ARIMIDEX [Suspect]
     Active Substance: ANASTROZOLE
     Indication: METASTASES TO LYMPH NODES
     Route: 048
     Dates: start: 20111005
  13. VITAMIN D [Concomitant]
     Active Substance: CHOLECALCIFEROL

REACTIONS (13)
  - Disease progression [Unknown]
  - Metastases to bone [Unknown]
  - Extramedullary haemopoiesis [Unknown]
  - Gamma-glutamyltransferase increased [Unknown]
  - Alanine aminotransferase increased [Unknown]
  - Metastases to liver [Unknown]
  - Neutropenia [Unknown]
  - Pulmonary mass [Unknown]
  - Decreased appetite [Unknown]
  - Mixed liver injury [Unknown]
  - Aspartate aminotransferase increased [Unknown]
  - Influenza like illness [Unknown]
  - Blood alkaline phosphatase increased [Unknown]

NARRATIVE: CASE EVENT DATE: 20150120
